FAERS Safety Report 24697251 (Version 1)
Quarter: 2024Q4

REPORT INFORMATION
  Report Type: Spontaneous
  Country: CN (occurrence: CN)
  Receive Date: 20241204
  Receipt Date: 20241204
  Transmission Date: 20250115
  Serious: Yes (Other)
  Sender: TERSERA THERAPEUTICS
  Company Number: CN-ASTRAZENECA-202411CHN023870CN

PATIENT

DRUGS (3)
  1. GOSERELIN [Suspect]
     Active Substance: GOSERELIN
     Indication: Chemotherapy
     Dosage: 3.6 MILLIGRAM, QMONTH
     Route: 058
     Dates: start: 20240807, end: 20240807
  2. ZOLADEX [Suspect]
     Active Substance: GOSERELIN ACETATE
     Indication: Chemotherapy
     Dosage: UNK
     Route: 065
  3. ANASTROZOLE [Suspect]
     Active Substance: ANASTROZOLE
     Indication: Endocrine neoplasm
     Dosage: 10 MILLIGRAM, QD
     Route: 058
     Dates: start: 20240807, end: 20240807

REACTIONS (1)
  - Platelet count decreased [Recovering/Resolving]

NARRATIVE: CASE EVENT DATE: 20240827
